FAERS Safety Report 6022595-7 (Version None)
Quarter: 2008Q4

REPORT INFORMATION
  Report Type: 
  Country: None (occurrence: None)
  Receive Date: 20081230
  Receipt Date: 20081226
  Transmission Date: 20090506
  Serious: Yes (Death)
  Sender: FDA-Public Use
  Company Number: PHHY2008JP19061

PATIENT
  Age: 61 Year
  Sex: Female

DRUGS (1)
  1. EXJADE [Suspect]
     Indication: IRON OVERLOAD
     Dosage: 725 MG, QD
     Route: 048
     Dates: start: 20080717, end: 20080729

REACTIONS (1)
  - DEATH [None]
